FAERS Safety Report 5264204-0 (Version None)
Quarter: 2007Q1

REPORT INFORMATION
  Report Type: 
  Country: None (occurrence: None)
  Receive Date: 20070309
  Receipt Date: 20070221
  Transmission Date: 20070707
  Serious: Yes (Other)
  Sender: FDA-Public Use
  Company Number: DSA_29479_2007

PATIENT

DRUGS (1)
  1. RENIVACE [Suspect]
     Dosage: 300 MG ONCE PO
     Route: 048
     Dates: start: 20070221, end: 20070221

REACTIONS (3)
  - ACCIDENTAL EXPOSURE [None]
  - ACCIDENTAL OVERDOSE [None]
  - DIARRHOEA [None]
